FAERS Safety Report 9595778 (Version 2)
Quarter: 2013Q4

REPORT INFORMATION
  Report Type: Spontaneous
  Country: JP (occurrence: JP)
  Receive Date: 20131004
  Receipt Date: 20131004
  Transmission Date: 20140711
  Serious: Yes (Hospitalization)
  Sender: FDA-Public Use
  Company Number: PHHY2013JP074324

PATIENT
  Sex: Male
  Weight: 61 kg

DRUGS (5)
  1. NEORAL [Suspect]
     Indication: NEPHROTIC SYNDROME
     Dosage: 150 MG, UNK
     Route: 048
     Dates: start: 200703, end: 2009
  2. NEORAL [Suspect]
     Dosage: 120 MG, UNK
     Route: 048
     Dates: start: 20111121, end: 20111217
  3. NEORAL [Suspect]
     Dosage: 150 MG, DAILY
     Route: 048
     Dates: start: 20111217
  4. MIZORIBINE [Suspect]
     Indication: NEPHROTIC SYNDROME
  5. CORTICOSTEROIDS [Suspect]
     Indication: NEPHROTIC SYNDROME

REACTIONS (4)
  - Cystitis noninfective [Recovering/Resolving]
  - Dysuria [Unknown]
  - Haematuria [Unknown]
  - Papilloma viral infection [Unknown]
